FAERS Safety Report 5240127-8 (Version None)
Quarter: 2007Q1

REPORT INFORMATION
  Report Type: 
  Country: None (occurrence: None)
  Receive Date: 20070216
  Receipt Date: 20070208
  Transmission Date: 20070707
  Serious: Yes (Other)
  Sender: FDA-Public Use
  Company Number: US-PFIZER INC-2007010804

PATIENT
  Sex: Female

DRUGS (4)
  1. SERTRALINE [Suspect]
     Indication: DEPRESSION
  2. DILANTIN [Suspect]
     Indication: CONVULSION
  3. KEPPRA [Suspect]
     Indication: CONVULSION
  4. CYCLOBENZAPRINE HCL [Concomitant]

REACTIONS (3)
  - GALLBLADDER OPERATION [None]
  - OVERDOSE [None]
  - WEIGHT INCREASED [None]
